FAERS Safety Report 18122390 (Version 1)
Quarter: 2020Q3

REPORT INFORMATION
  Report Type: Other
  Country: FR (occurrence: FR)
  Receive Date: 20200807
  Receipt Date: 20200807
  Transmission Date: 20201103
  Serious: Yes (Hospitalization)
  Sender: FDA-Public Use
  Company Number: FR-CADILA HEALTHCARE LIMITED-FR-ZYDUS-054183

PATIENT

DRUGS (10)
  1. AMIODARONE [Suspect]
     Active Substance: AMIODARONE
     Indication: POISONING DELIBERATE
     Dosage: 300 MILLIGRAM
     Route: 048
     Dates: start: 20200703, end: 20200703
  2. XARELTO [Suspect]
     Active Substance: RIVAROXABAN
     Indication: POISONING DELIBERATE
     Dosage: 80 MILLIGRAM
     Route: 048
     Dates: start: 20200703, end: 20200703
  3. ACEBUTOLOL [Suspect]
     Active Substance: ACEBUTOLOL
     Indication: POISONING DELIBERATE
     Dosage: 200 MILLIGRAM (TOTAL)
     Route: 048
     Dates: start: 20200703, end: 20200703
  4. LERCAN [Suspect]
     Active Substance: LERCANIDIPINE
     Indication: POISONING DELIBERATE
     Dosage: 6 DOSAGE FORM (TOTAL)
     Route: 048
     Dates: start: 20200703, end: 20200703
  5. LEVOTHYROX [Suspect]
     Active Substance: LEVOTHYROXINE
     Indication: POISONING DELIBERATE
     Dosage: 300 MICROGRAM (TOTAL)
     Route: 048
     Dates: start: 20200703, end: 20200703
  6. PARACETAMOL [Suspect]
     Active Substance: ACETAMINOPHEN
     Indication: POISONING DELIBERATE
     Dosage: UNK
     Route: 048
     Dates: start: 20200703, end: 20200703
  7. CANDESARTAN. [Suspect]
     Active Substance: CANDESARTAN
     Dosage: 4 DOSAGE FORM (TOTAL)
     Route: 048
     Dates: start: 20200703, end: 20200703
  8. RIVOTRIL [Suspect]
     Active Substance: CLONAZEPAM
     Indication: POISONING DELIBERATE
     Dosage: 2 DF (TOTAL)
     Route: 048
     Dates: start: 20200703, end: 20200703
  9. LYSANXIA [Suspect]
     Active Substance: PRAZEPAM
     Indication: POISONING DELIBERATE
     Dosage: 2 DF(TOTAL)
     Route: 048
     Dates: start: 20200703, end: 20200703
  10. OMEPRAZOLE. [Suspect]
     Active Substance: OMEPRAZOLE
     Indication: POISONING DELIBERATE
     Dosage: 80 MILLIGRAM
     Route: 048
     Dates: start: 20200703, end: 20200703

REACTIONS (3)
  - Prothrombin time shortened [Recovering/Resolving]
  - Disturbance in attention [Recovered/Resolved]
  - Hypotension [Recovered/Resolved]

NARRATIVE: CASE EVENT DATE: 20200703
